FAERS Safety Report 7493870-4 (Version None)
Quarter: 2011Q2

REPORT INFORMATION
  Report Type: 
  Country: None (occurrence: None)
  Receive Date: 20110513
  Receipt Date: 20110429
  Transmission Date: 20111010
  Serious: Yes (Other)
  Sender: FDA-Public Use
  Company Number: 2011MA005404

PATIENT
  Age: 29 Year
  Sex: Female

DRUGS (1)
  1. METFORMIN HYDROCHLORIDE [Suspect]
     Indication: POLYCYSTIC OVARIES
     Dosage: 1 DF;BID;PO
     Route: 048

REACTIONS (4)
  - APHASIA [None]
  - DRUG EXPOSURE DURING PREGNANCY [None]
  - CONFUSIONAL STATE [None]
  - DYSARTHRIA [None]
